FAERS Safety Report 25721314 (Version 3)
Quarter: 2025Q4

REPORT INFORMATION
  Report Type: Spontaneous
  Country: US (occurrence: US)
  Receive Date: 20250825
  Receipt Date: 20251001
  Transmission Date: 20260118
  Serious: Yes (Other)
  Sender: ABBVIE
  Company Number: US-ABBVIE-6426508

PATIENT
  Age: 83 Year
  Sex: Male
  Weight: 65 kg

DRUGS (12)
  1. ACULAR [Suspect]
     Active Substance: KETOROLAC TROMETHAMINE
     Indication: Postoperative care
     Dosage: FORM STRENGTH: 1 DROP(S)?(KETOROLAC 5MG/ML SOL (8344X)?PATIENT ROA: OPHTHALMIC
     Route: 065
     Dates: start: 20250307, end: 202504
  2. ACULAR [Suspect]
     Active Substance: KETOROLAC TROMETHAMINE
     Indication: Postoperative care
  3. LISINOPRIL [Concomitant]
     Active Substance: LISINOPRIL
     Indication: Blood pressure measurement
  4. AMLODIPINE BESYLATE [Concomitant]
     Active Substance: AMLODIPINE BESYLATE
     Indication: Blood pressure measurement
  5. WARFARIN SODIUM [Suspect]
     Active Substance: WARFARIN SODIUM
     Indication: Anticoagulant therapy
     Dosage: FORM STRENGTH: 5 MILLIGRAM, DECREASED DOSING
     Route: 048
     Dates: start: 20250904
  6. WARFARIN SODIUM [Suspect]
     Active Substance: WARFARIN SODIUM
     Indication: Anticoagulant therapy
     Dosage: FORM STRENGTH: 5 MILLIGRAM
     Route: 048
     Dates: start: 202505, end: 202506
  7. FERROUS SULFATE [Concomitant]
     Active Substance: FERROUS SULFATE
     Indication: Anaemia
  8. TRAZODONE [Concomitant]
     Active Substance: TRAZODONE HYDROCHLORIDE
     Indication: Sleep disorder
  9. VITAMIN D3 [Concomitant]
     Active Substance: CHOLECALCIFEROL
     Indication: Vitamin supplementation
  10. FOLIC ACID [Concomitant]
     Active Substance: FOLIC ACID
     Indication: Vitamin supplementation
  11. LEVOTHYROXINE [Concomitant]
     Active Substance: LEVOTHYROXINE
     Indication: Thyroid disorder
  12. ELIQUIS [Concomitant]
     Active Substance: APIXABAN
     Indication: Cerebrovascular accident

REACTIONS (20)
  - Anaemia [Recovering/Resolving]
  - Skin ulcer [Recovering/Resolving]
  - Mobility decreased [Recovered/Resolved]
  - Dry skin [Recovering/Resolving]
  - Rash [Not Recovered/Not Resolved]
  - Gastric haemorrhage [Recovered/Resolved]
  - Skin exfoliation [Recovering/Resolving]
  - Fall [Recovered/Resolved]
  - Scab [Recovering/Resolving]
  - Rash [Recovered/Resolved]
  - Asthenia [Not Recovered/Not Resolved]
  - Haematochezia [Recovered/Resolved]
  - Amnesia [Not Recovered/Not Resolved]
  - Dysarthria [Recovering/Resolving]
  - Throat irritation [Recovering/Resolving]
  - Pain of skin [Not Recovered/Not Resolved]
  - Erythema [Recovered/Resolved]
  - Facial pain [Not Recovered/Not Resolved]
  - Drug specific antibody present [Not Recovered/Not Resolved]
  - Pruritus [Recovering/Resolving]

NARRATIVE: CASE EVENT DATE: 20250101
